FAERS Safety Report 4758454-7 (Version None)
Quarter: 2005Q3

REPORT INFORMATION
  Report Type: 
  Country: None (occurrence: None)
  Receive Date: 20050901
  Receipt Date: 20020613
  Transmission Date: 20060218
  Serious: Yes (Hospitalization)
  Sender: FDA-Public Use
  Company Number: FR-BOEHRINGER INGELHEIM PHARMACEUTICALS, INC.-2002-FF-00390FF

PATIENT
  Sex: Female
  Weight: 1.28 kg

DRUGS (6)
  1. VIRAMUNE [Suspect]
     Indication: HIV INFECTION
     Route: 015
     Dates: end: 20000608
  2. RETROVIR [Suspect]
     Indication: VERTICAL INFECTION TRANSMISSION
     Route: 015
  3. RETROVIR [Suspect]
     Route: 042
     Dates: start: 20000608, end: 20000617
  4. RETROVIR [Suspect]
     Route: 048
     Dates: start: 20000618, end: 20000704
  5. MEDIALIPIDE [Suspect]
     Dates: start: 20000618, end: 20000703
  6. COMBIVIR [Suspect]
     Indication: HIV INFECTION
     Route: 015
     Dates: end: 20000608

REACTIONS (7)
  - ANAEMIA MACROCYTIC [None]
  - ANAEMIA NEONATAL [None]
  - DRUG EXPOSURE DURING PREGNANCY [None]
  - HEPATOMEGALY [None]
  - NEONATAL HEPATOMEGALY [None]
  - NEUTROPENIA [None]
  - NEUTROPENIA NEONATAL [None]
